FAERS Safety Report 19024360 (Version 4)
Quarter: 2021Q4

REPORT INFORMATION
  Report Type: Other
  Country: US (occurrence: None)
  Receive Date: 20210318
  Receipt Date: 20211109
  Transmission Date: 20220303
  Serious: Yes (Hospitalization, Other)
  Sender: FDA-Public Use
  Company Number: US-ROCHE-2786312

PATIENT
  Sex: Female

DRUGS (4)
  1. ALECENSA [Suspect]
     Active Substance: ALECTINIB HYDROCHLORIDE
     Indication: Lung neoplasm malignant
     Dosage: TAKE 4 CAPSULE(S) BY MOUTH TWICE A DAY SWALLOW WHO
     Route: 048
  2. ALECENSA [Suspect]
     Active Substance: ALECTINIB HYDROCHLORIDE
     Indication: Iron deficiency anaemia
  3. ASPIRIN [Concomitant]
     Active Substance: ASPIRIN
     Dosage: 2 TAB PO DAILY
  4. ISOSORBIDE MONONITRATE [Concomitant]
     Active Substance: ISOSORBIDE MONONITRATE
     Route: 048

REACTIONS (11)
  - Cerebrovascular accident [Unknown]
  - Seizure [Unknown]
  - Transient ischaemic attack [Unknown]
  - Weight decreased [Unknown]
  - Treatment noncompliance [Unknown]
  - Tremor [Unknown]
  - Speech disorder [Unknown]
  - Vomiting [Unknown]
  - Diarrhoea [Unknown]
  - Headache [Unknown]
  - Decreased appetite [Unknown]
